FAERS Safety Report 19542585 (Version 2)
Quarter: 2021Q3

REPORT INFORMATION
  Report Type: Spontaneous
  Country: JP (occurrence: JP)
  Receive Date: 20210713
  Receipt Date: 20210802
  Transmission Date: 20211014
  Serious: Yes (Death, Other)
  Sender: FDA-Public Use
  Company Number: JP-009507513-2107JPN000585J

PATIENT
  Age: 8 Decade
  Sex: Male

DRUGS (2)
  1. INLYTA [Concomitant]
     Active Substance: AXITINIB
     Indication: RENAL CELL CARCINOMA STAGE IV
     Dosage: UNK
     Route: 048
     Dates: start: 202102, end: 202105
  2. KEYTRUDA [Suspect]
     Active Substance: PEMBROLIZUMAB
     Indication: RENAL CELL CARCINOMA STAGE IV
     Dosage: 200 MILLIGRAM, Q3W
     Route: 041
     Dates: start: 202102, end: 202105

REACTIONS (1)
  - Mechanical ileus [Fatal]

NARRATIVE: CASE EVENT DATE: 2021
